FAERS Safety Report 13281350 (Version 1)
Quarter: 2017Q1

REPORT INFORMATION
  Report Type: Spontaneous
  Country: US (occurrence: US)
  Receive Date: 20170228
  Receipt Date: 20170228
  Transmission Date: 20170428
  Serious: Yes (Hospitalization, Other)
  Sender: FDA-Public Use
  Company Number: None

PATIENT
  Sex: Female
  Weight: 35.1 kg

DRUGS (13)
  1. SPIREVA RESPIMAT [Concomitant]
  2. ALBUTEROL. [Concomitant]
     Active Substance: ALBUTEROL
  3. DULERA [Concomitant]
     Active Substance: FORMOTEROL FUMARATE DIHYDRATE\MOMETASONE FUROATE
  4. NAC [Concomitant]
  5. LYSINOPRIL [Concomitant]
  6. METOPOLOL [Concomitant]
  7. VITAMIN C [Concomitant]
     Active Substance: ASCORBIC ACID
  8. MUCINEX [Concomitant]
     Active Substance: GUAIFENESIN
  9. PLAVIX [Suspect]
     Active Substance: CLOPIDOGREL BISULFATE
     Indication: THROMBOSIS PROPHYLAXIS
     Dosage: ?          QUANTITY:90 TABLET(S);?
     Route: 048
  10. FLUXOTINE [Concomitant]
     Active Substance: FLUOXETINE HYDROCHLORIDE
  11. VITAMIN [Concomitant]
     Active Substance: VITAMINS
  12. SIMVASTATIN. [Concomitant]
     Active Substance: SIMVASTATIN
  13. KEPPRA [Concomitant]
     Active Substance: LEVETIRACETAM

REACTIONS (2)
  - Contusion [None]
  - Incorrect dose administered [None]
